FAERS Safety Report 4707233-5 (Version None)
Quarter: 2005Q3

REPORT INFORMATION
  Report Type: 
  Country: None (occurrence: None)
  Receive Date: 20050701
  Receipt Date: 20050623
  Transmission Date: 20060218
  Serious: Yes (Hospitalization)
  Sender: FDA-Public Use
  Company Number: DEWYE767423JUN05

PATIENT
  Age: 58 Year
  Sex: Female

DRUGS (11)
  1. RAPAMUNE [Suspect]
     Indication: PROPHYLAXIS AGAINST TRANSPLANT REJECTION
     Dosage: 2 MG ORAL
     Route: 048
     Dates: start: 20050304, end: 20050519
  2. PROGRAF [Concomitant]
  3. PREDNISONE [Concomitant]
  4. NORVASC [Concomitant]
  5. METOPROLOL TARTRATE [Concomitant]
  6. DIOVAN HCT [Concomitant]
  7. LOCOL (FLUVASTATN SODIUM) [Concomitant]
  8. MAGNESIUM (MAGNESIUM) [Concomitant]
  9. ALLOPURINOL [Concomitant]
  10. EINSALPHA (ALFACALCIDOL) [Concomitant]
  11. NEUROTRAT FORTE (CYANOCOBALAMIN/ PYRIDOXINE HYDROCHLORIDE/ THIAMINE HY [Concomitant]

REACTIONS (1)
  - LEUKOCYTOCLASTIC VASCULITIS [None]
